FAERS Safety Report 8530518-1 (Version None)
Quarter: 2012Q3

REPORT INFORMATION
  Report Type: 
  Country: None (occurrence: None)
  Receive Date: 20120723
  Receipt Date: 20120716
  Transmission Date: 20120928
  Serious: Yes (Other)
  Sender: FDA-Public Use
  Company Number: GB-PFIZER INC-2012103194

PATIENT
  Age: 40 Year
  Sex: Male

DRUGS (3)
  1. LYRICA [Suspect]
     Indication: NEURALGIA
     Dosage: 150 MG, 2X/DAY
     Dates: start: 20110310, end: 20110405
  2. METHADONE [Concomitant]
     Indication: DEPENDENCE
     Dosage: 50 MG, DAILY
     Route: 048
  3. DIAZEPAM [Concomitant]
     Dosage: UP TO 100MG DAILY THREE TIMES A WEEK

REACTIONS (2)
  - DRUG ABUSE [None]
  - EUPHORIC MOOD [None]
